FAERS Safety Report 9224393 (Version 1)
Quarter: 2013Q2

REPORT INFORMATION
  Report Type: Spontaneous
  Country: US (occurrence: None)
  Receive Date: 20130409
  Receipt Date: 20130409
  Transmission Date: 20140414
  Serious: Yes (Life-Threatening, Hospitalization)
  Sender: FDA-Public Use
  Company Number: None

PATIENT
  Age: 13 Year
  Sex: Female
  Weight: 63.5 kg

DRUGS (1)
  1. RECLIPSEN [Suspect]
     Indication: OVARIAN CYST
     Dosage: 1 DAILY DOSE 1 DAILY.15-30 MG
     Dates: start: 20130224, end: 20130315

REACTIONS (3)
  - Fall [None]
  - Ligament sprain [None]
  - Thrombosis [None]
